FAERS Safety Report 10217048 (Version 1)
Quarter: 2014Q2

REPORT INFORMATION
  Report Type: Spontaneous
  Country: CA (occurrence: CA)
  Receive Date: 20140604
  Receipt Date: 20140604
  Transmission Date: 20141212
  Serious: Yes (Other)
  Sender: FDA-Public Use
  Company Number: PHHY2014CA065648

PATIENT
  Age: 43 Year
  Sex: Male
  Weight: 102.4 kg

DRUGS (1)
  1. LANSOPRAZOLE SANDOZ [Suspect]
     Dosage: UNK UKN, QD

REACTIONS (2)
  - Dyspepsia [Recovered/Resolved]
  - Product substitution issue [Recovered/Resolved]
